FAERS Safety Report 4510298-7 (Version None)
Quarter: 2004Q4

REPORT INFORMATION
  Report Type: 
  Country: None (occurrence: None)
  Receive Date: 20041122
  Receipt Date: 20041109
  Transmission Date: 20050328
  Serious: Yes (Other)
  Sender: FDA-Public Use
  Company Number: 2004058557

PATIENT
  Age: 45 Year
  Sex: Female

DRUGS (10)
  1. NEURONTIN [Suspect]
     Indication: REFLEX SYMPATHETIC DYSTROPHY
     Dosage: 400 MG (400 MG), ORAL
     Route: 048
     Dates: start: 19940101
  2. CETIRIZINE HCL [Concomitant]
  3. RANITIDINE HYDROCHLORIDE [Concomitant]
  4. DIPHENHYDRAMINE HCL [Concomitant]
  5. MORPHINE SULFATE [Concomitant]
  6. INTERFERON BETA (INTERFERON BETA) [Concomitant]
  7. MORPHINE SULFATE [Concomitant]
  8. LOPERAMIDE HYDROCHLORIDE [Concomitant]
  9. OXYBUTYNIN CHLORIDE [Concomitant]
  10. TIZANIDINE HCL [Concomitant]

REACTIONS (6)
  - ECONOMIC PROBLEM [None]
  - MULTIPLE SCLEROSIS [None]
  - TOOTH DISORDER [None]
  - TOOTH FRACTURE [None]
  - TREATMENT NONCOMPLIANCE [None]
  - WEIGHT DECREASED [None]
